FAERS Safety Report 7593924-8 (Version None)
Quarter: 2011Q3

REPORT INFORMATION
  Report Type: 
  Country: None (occurrence: None)
  Receive Date: 20110706
  Receipt Date: 20110624
  Transmission Date: 20111222
  Serious: Yes (Hospitalization)
  Sender: FDA-Public Use
  Company Number: FR-UCBSA-036041

PATIENT
  Sex: Male

DRUGS (1)
  1. KEPPRA [Suspect]
     Route: 048
     Dates: start: 20110401, end: 20110417

REACTIONS (2)
  - HYPERSOMNIA [None]
  - HALLUCINATION, AUDITORY [None]
